FAERS Safety Report 24562095 (Version 2)
Quarter: 2024Q4

REPORT INFORMATION
  Report Type: Spontaneous
  Country: US (occurrence: US)
  Receive Date: 20241029
  Receipt Date: 20241118
  Transmission Date: 20250114
  Serious: Yes (Other)
  Sender: MYLAN
  Company Number: US-MYLANLABS-2024M1090396

PATIENT
  Age: 68 Year
  Sex: Female

DRUGS (1)
  1. PREGABALIN [Suspect]
     Active Substance: PREGABALIN
     Indication: Multiple sclerosis
     Dosage: 150 MILLIGRAM, TID (3X DAY INSTEAD OF 2 TIMES)
     Route: 065
     Dates: start: 202402

REACTIONS (4)
  - Hallucination, auditory [Recovered/Resolved]
  - Adverse drug reaction [Unknown]
  - Enuresis [Not Recovered/Not Resolved]
  - Off label use [Unknown]
